FAERS Safety Report 15831870 (Version 2)
Quarter: 2019Q1

REPORT INFORMATION
  Report Type: Report from Study
  Country: MX (occurrence: MX)
  Receive Date: 20190116
  Receipt Date: 20190212
  Transmission Date: 20190417
  Serious: Yes (Other)
  Sender: FDA-Public Use
  Company Number: PHHY2019MX008415

PATIENT
  Sex: Female
  Weight: 56 kg

DRUGS (2)
  1. METFORMIN [Concomitant]
     Active Substance: METFORMIN HYDROCHLORIDE
     Indication: DIABETES MELLITUS
     Dosage: 3 DF, BEFORE EVERY MEAL
     Route: 048
     Dates: start: 2010
  2. CO-DIOVAN [Suspect]
     Active Substance: HYDROCHLOROTHIAZIDE\VALSARTAN
     Indication: HYPERTENSION
     Dosage: 1 DF (HYDROCHLOROTHIAZIDE 12.5MG, VALSARTAN 160MG), QD
     Route: 048
     Dates: start: 2010

REACTIONS (1)
  - Nephrolithiasis [Recovered/Resolved]
